FAERS Safety Report 6197865-2 (Version None)
Quarter: 2009Q2

REPORT INFORMATION
  Report Type: 
  Country: None (occurrence: None)
  Receive Date: 20090521
  Receipt Date: 20090513
  Transmission Date: 20091009
  Serious: Yes (Death, Hospitalization)
  Sender: FDA-Public Use
  Company Number: US-NOVOPROD-287371

PATIENT
  Age: 42 Year
  Sex: Male

DRUGS (19)
  1. NOVOMIX 50 [Suspect]
     Indication: TYPE 2 DIABETES MELLITUS
     Dosage: 63 IU, QD
     Route: 058
     Dates: start: 20080924, end: 20090204
  2. SAXAGLIPTIN [Suspect]
     Indication: TYPE 2 DIABETES MELLITUS
     Dosage: 2.5 MG, QD
     Dates: start: 20080730, end: 20090204
  3. LANOXIN [Concomitant]
     Dates: start: 20080326
  4. CALCIUM CARBONATE [Concomitant]
     Dates: start: 20080813
  5. SEVELAMER HYDROCHLORIDE [Concomitant]
     Dates: start: 20080813
  6. MOXONIDINE [Concomitant]
     Dates: start: 20080714
  7. RAMIPRIL [Concomitant]
     Dates: start: 20080714
  8. LOSARTAN POTASSIUM [Concomitant]
     Dates: start: 20080714
  9. FOLIC ACID [Concomitant]
     Dates: start: 20071101
  10. CLONAZEPAM [Concomitant]
     Dates: start: 20080714
  11. ALPRAZOLAM [Concomitant]
     Dates: start: 20080714
  12. EPOETIN BETA [Concomitant]
     Dates: start: 20070101
  13. HEPARIN [Concomitant]
     Dates: start: 20070101
  14. VITAMIN B-12 [Concomitant]
     Dates: start: 20080714
  15. SULPIRIDE [Concomitant]
     Dates: start: 20080630
  16. VENOFER [Concomitant]
     Dates: start: 20080101
  17. INSULIN [Concomitant]
     Dates: start: 20070401
  18. CARVEDILOL [Concomitant]
  19. CARVACROL [Concomitant]
     Dates: start: 20080714

REACTIONS (2)
  - DEATH [None]
  - DIABETES MELLITUS INADEQUATE CONTROL [None]
